FAERS Safety Report 4887453-X (Version None)
Quarter: 2006Q1

REPORT INFORMATION
  Report Type: 
  Country: None (occurrence: None)
  Receive Date: 20060123
  Receipt Date: 20050208
  Transmission Date: 20060701
  Serious: Yes (Death, Other)
  Sender: FDA-Public Use
  Company Number: PHBS2005FI01962

PATIENT
  Age: 49 Year
  Sex: Male

DRUGS (1)
  1. CLOZAPINE [Suspect]
     Indication: AGGRESSION
     Dosage: 450 MG/D
     Route: 048
     Dates: end: 20000101

REACTIONS (5)
  - AGRANULOCYTOSIS [None]
  - BLOOD DISORDER [None]
  - INFECTION [None]
  - MYELODYSPLASTIC SYNDROME [None]
  - WHITE BLOOD CELL COUNT DECREASED [None]
